FAERS Safety Report 25134850 (Version 1)
Quarter: 2025Q1

REPORT INFORMATION
  Report Type: Spontaneous
  Country: US (occurrence: None)
  Receive Date: 20250327
  Receipt Date: 20250327
  Transmission Date: 20250409
  Serious: No
  Sender: FDA-CTU
  Company Number: None

PATIENT
  Age: 39 Year
  Sex: Female
  Weight: 72.57 kg

DRUGS (1)
  1. RINVOQ [Suspect]
     Active Substance: UPADACITINIB
     Indication: Rheumatoid arthritis
     Dosage: TAKE 1 TABLET BY MOUTH EVERY MORNING  AS DIRECTED.
     Route: 048
     Dates: start: 202405

REACTIONS (1)
  - Atypical pneumonia [None]
